FAERS Safety Report 24441615 (Version 1)
Quarter: 2024Q4

REPORT INFORMATION
  Report Type: Spontaneous
  Country: US (occurrence: US)
  Receive Date: 20241016
  Receipt Date: 20241016
  Transmission Date: 20250114
  Serious: Yes (Other)
  Sender: SANOFI AVENTIS
  Company Number: US-SA-2024SA290517

PATIENT
  Age: 61 Year
  Sex: Female

DRUGS (1)
  1. DUPIXENT [Suspect]
     Active Substance: DUPILUMAB
     Indication: Neurodermatitis
     Dosage: 300 MG, QOW
     Route: 058
     Dates: start: 202407

REACTIONS (13)
  - Intussusception [Unknown]
  - Lactic acidosis [Unknown]
  - Large intestinal obstruction [Recovered/Resolved]
  - Back pain [Unknown]
  - Abdominal pain [Unknown]
  - Flank pain [Unknown]
  - Dyspnoea [Unknown]
  - Chest pain [Unknown]
  - Panic attack [Unknown]
  - Nausea [Unknown]
  - Vomiting [Unknown]
  - Retching [Unknown]
  - Headache [Not Recovered/Not Resolved]

NARRATIVE: CASE EVENT DATE: 20240101
